FAERS Safety Report 17256776 (Version 1)
Quarter: 2019Q4

REPORT INFORMATION
  Report Type: Spontaneous
  Country: US (occurrence: US)
  Receive Date: 20191216
  Receipt Date: 20191216
  Transmission Date: 20200122
  Serious: Yes (Life-Threatening)
  Sender: FDA-Public Use
  Company Number: None

PATIENT
  Age: 60 Year
  Sex: Female
  Weight: 105 kg

DRUGS (1)
  1. PACLITAXEL (PACLITAXEL 100MG/17ML INJ, CONC) [Suspect]
     Active Substance: PACLITAXEL
     Indication: SQUAMOUS CELL CARCINOMA OF LUNG
     Dates: start: 20191119, end: 20191119

REACTIONS (2)
  - Hypertension [None]
  - Anaphylactic reaction [None]

NARRATIVE: CASE EVENT DATE: 20191119
